FAERS Safety Report 4829530-5 (Version None)
Quarter: 2005Q4

REPORT INFORMATION
  Report Type: 
  Country: None (occurrence: None)
  Receive Date: 20051116
  Receipt Date: 20051107
  Transmission Date: 20060501
  Serious: Yes (Other)
  Sender: FDA-Public Use
  Company Number: 2005AC01803

PATIENT
  Age: 53 Year
  Sex: Female
  Weight: 55 kg

DRUGS (6)
  1. PROPOFOL [Suspect]
     Indication: ANAESTHESIA
     Dosage: INDUCTION
     Route: 042
  2. PROPOFOL [Suspect]
     Dosage: BOLUS
     Route: 042
  3. PROPOFOL [Suspect]
     Dosage: DRIP MAINTENANCE RATE 500 MGH^-1, CHANGED TO 380 MGH^-1 THEN 450 MGH^-1
     Route: 042
  4. FENTANYL [Concomitant]
     Indication: ANAESTHESIA
     Route: 042
  5. ATRACURIUM [Concomitant]
     Indication: ANAESTHESIA
     Route: 042
  6. ALFENTANIL [Concomitant]
     Indication: ANAESTHESIA
     Dosage: BOLUS

REACTIONS (2)
  - BLOOD PRESSURE INCREASED [None]
  - UNWANTED AWARENESS DURING ANAESTHESIA [None]
